FAERS Safety Report 23091097 (Version 1)
Quarter: 2023Q4

REPORT INFORMATION
  Report Type: Spontaneous
  Country: KR (occurrence: KR)
  Receive Date: 20231020
  Receipt Date: 20231020
  Transmission Date: 20240110
  Serious: Yes (Other)
  Sender: FDA-Public Use
  Company Number: KR-MYLANLABS-2023M1110837

PATIENT
  Age: 35 Year
  Sex: Male

DRUGS (2)
  1. LIPITOR [Suspect]
     Active Substance: ATORVASTATIN CALCIUM
     Indication: Conjunctivitis
     Dosage: 1 DOSAGE FORM, (0.5 DAYS)
     Route: 048
     Dates: start: 20190115, end: 20190115
  2. VALSARTAN [Suspect]
     Active Substance: VALSARTAN
     Indication: Conjunctivitis
     Dosage: 1 DOSAGE FORM, (0.5 DAYS)
     Route: 065
     Dates: start: 20190115, end: 20190115

REACTIONS (3)
  - Stevens-Johnson syndrome [Recovered/Resolved]
  - Rash [Recovered/Resolved]
  - Off label use [Unknown]

NARRATIVE: CASE EVENT DATE: 20190115
